FAERS Safety Report 10094122 (Version 1)
Quarter: 2014Q2

REPORT INFORMATION
  Report Type: Report from Study
  Country: US (occurrence: US)
  Receive Date: 20140422
  Receipt Date: 20140422
  Transmission Date: 20141212
  Serious: Yes (Other)
  Sender: FDA-Public Use
  Company Number: US-ROCHE-1381380

PATIENT
  Age: 18 Year
  Sex: Male
  Weight: 64.47 kg

DRUGS (5)
  1. ACTEMRA [Suspect]
     Indication: JUVENILE IDIOPATHIC ARTHRITIS
     Route: 058
     Dates: start: 20140206
  2. ACTEMRA [Suspect]
     Route: 058
     Dates: start: 20140406
  3. GAMMAGARD [Concomitant]
     Indication: IMMUNOGLOBULINS DECREASED
     Route: 065
     Dates: start: 20131108
  4. SULFASALAZINE [Concomitant]
     Indication: RHEUMATOID ARTHRITIS
     Route: 065
     Dates: start: 20131108
  5. SULFASALAZINE [Concomitant]
     Indication: JUVENILE IDIOPATHIC ARTHRITIS

REACTIONS (5)
  - Pain [Not Recovered/Not Resolved]
  - Fatigue [Not Recovered/Not Resolved]
  - Blood immunoglobulin G decreased [Not Recovered/Not Resolved]
  - Drug ineffective [Unknown]
  - Dehydration [Unknown]
